FAERS Safety Report 16163621 (Version 1)
Quarter: 2019Q2

REPORT INFORMATION
  Report Type: Spontaneous
  Country: US (occurrence: US)
  Receive Date: 20190405
  Receipt Date: 20190405
  Transmission Date: 20190711
  Serious: Yes (Hospitalization)
  Sender: FDA-Public Use
  Company Number: US-009507513-1903USA013176

PATIENT
  Sex: Female

DRUGS (2)
  1. COZAAR [Suspect]
     Active Substance: LOSARTAN POTASSIUM
     Indication: HYPERTENSION
     Dosage: 25 MILLIGRAM (1 TABLET), QD
     Route: 048
     Dates: start: 2016
  2. COZAAR [Suspect]
     Active Substance: LOSARTAN POTASSIUM
     Dosage: HALF-A-PILL DAILY
     Route: 048
     Dates: start: 2018

REACTIONS (8)
  - Limb injury [Recovering/Resolving]
  - Tendonitis [Unknown]
  - Intentional product misuse [Unknown]
  - Muscle atrophy [Unknown]
  - Blood pressure increased [Unknown]
  - Wrong technique in product usage process [Recovered/Resolved]
  - Joint injury [Recovering/Resolving]
  - Mobility decreased [Recovering/Resolving]

NARRATIVE: CASE EVENT DATE: 201810
